FAERS Safety Report 13009870 (Version 2)
Quarter: 2017Q1

REPORT INFORMATION
  Report Type: Spontaneous
  Country: JP (occurrence: JP)
  Receive Date: 20161208
  Receipt Date: 20170126
  Transmission Date: 20170428
  Serious: Yes (Hospitalization)
  Sender: FDA-Public Use
  Company Number: JP-ASTELLAS-2016JP017658

PATIENT
  Age: 52 Year
  Sex: Female
  Weight: 40 kg

DRUGS (12)
  1. PROGRAF [Suspect]
     Active Substance: TACROLIMUS\TACROLIMUS ANHYDROUS
     Indication: GRAFT VERSUS HOST DISEASE
     Dosage: 0.8 MG, CONTINUOUS
     Route: 041
     Dates: start: 20160921, end: 20160923
  2. PROGRAF [Suspect]
     Active Substance: TACROLIMUS\TACROLIMUS ANHYDROUS
     Dosage: 0.6 MG, CONTINUOUS
     Route: 041
     Dates: start: 20160923, end: 20160925
  3. PROGRAF [Suspect]
     Active Substance: TACROLIMUS\TACROLIMUS ANHYDROUS
     Dosage: 0.3 MG, CONTINUOUS
     Route: 041
     Dates: start: 20160926, end: 20160930
  4. PROGRAF [Suspect]
     Active Substance: TACROLIMUS\TACROLIMUS ANHYDROUS
     Dosage: 0.1 MG, CONTINUOUS
     Route: 041
     Dates: start: 20160930, end: 20161007
  5. MAGNESIUM OXIDE. [Concomitant]
     Active Substance: MAGNESIUM OXIDE
     Indication: CONSTIPATION
     Route: 048
     Dates: start: 20160828
  6. PROGRAF [Suspect]
     Active Substance: TACROLIMUS\TACROLIMUS ANHYDROUS
     Dosage: 0.4 MG, TWICE DAILY
     Route: 048
     Dates: start: 20161031, end: 20161116
  7. PROGRAF [Suspect]
     Active Substance: TACROLIMUS\TACROLIMUS ANHYDROUS
     Dosage: 0.2 MG, TWICE DAILY
     Route: 048
     Dates: start: 20161117, end: 20161130
  8. NEXIUM [Concomitant]
     Active Substance: ESOMEPRAZOLE MAGNESIUM
     Indication: GASTRITIS
     Route: 048
     Dates: start: 20140825
  9. DIFLUCAN [Concomitant]
     Active Substance: FLUCONAZOLE
     Indication: INFECTION PROPHYLAXIS
     Route: 048
     Dates: start: 20150810
  10. PROGRAF [Suspect]
     Active Substance: TACROLIMUS\TACROLIMUS ANHYDROUS
     Indication: GRAFT VERSUS HOST DISEASE
     Dosage: 0.2 MG, TWICE DAILY
     Route: 048
     Dates: start: 20161005, end: 20161005
  11. PROGRAF [Suspect]
     Active Substance: TACROLIMUS\TACROLIMUS ANHYDROUS
     Dosage: 0.3 MG, TWICE DAILY
     Route: 048
     Dates: start: 20161006, end: 20161019
  12. PROGRAF [Suspect]
     Active Substance: TACROLIMUS\TACROLIMUS ANHYDROUS
     Indication: GRAFT VERSUS HOST DISEASE
     Dosage: 0.5 MG, TWICE DAILY
     Route: 048
     Dates: start: 20161020, end: 20161031

REACTIONS (1)
  - Cholecystitis acute [Recovering/Resolving]

NARRATIVE: CASE EVENT DATE: 20161015
